FAERS Safety Report 23867167 (Version 3)
Quarter: 2024Q2

REPORT INFORMATION
  Report Type: Report from Study
  Country: KR (occurrence: KR)
  Receive Date: 20240517
  Receipt Date: 20240604
  Transmission Date: 20240715
  Serious: Yes (Hospitalization, Other)
  Sender: FDA-Public Use
  Company Number: KR-TAKEDA-2024TUS047455

PATIENT
  Age: 68 Year
  Sex: Male

DRUGS (2)
  1. MOBOCERTINIB [Suspect]
     Active Substance: MOBOCERTINIB
     Indication: Non-small cell lung cancer
     Dosage: 80 MILLIGRAM
     Route: 048
     Dates: start: 20220816, end: 20240409
  2. METHOTREXATE [Concomitant]
     Active Substance: METHOTREXATE
     Dosage: 15 MILLIGRAM
     Route: 065
     Dates: start: 20231122, end: 20240415

REACTIONS (7)
  - Metastases to meninges [Recovering/Resolving]
  - Non-small cell lung cancer [Unknown]
  - Retching [Unknown]
  - General physical health deterioration [Unknown]
  - Vomiting [Unknown]
  - Oxygen consumption increased [Unknown]
  - Therapy partial responder [Unknown]
